FAERS Safety Report 8249176-9 (Version None)
Quarter: 2012Q2

REPORT INFORMATION
  Report Type: 
  Country: None (occurrence: None)
  Receive Date: 20120402
  Receipt Date: 20120323
  Transmission Date: 20120825
  Serious: Yes (Other)
  Sender: FDA-Public Use
  Company Number: US-BAYER-2012-003900

PATIENT
  Age: 22 Year
  Sex: Female
  Weight: 47 kg

DRUGS (2)
  1. MIRENA [Suspect]
     Indication: CONTRACEPTION
     Dosage: 20 MCG/24HR, CONT
     Route: 015
     Dates: start: 20110921
  2. ACYCLOVIR [Concomitant]
     Indication: ORAL HERPES
     Dosage: 400 MG, UNK

REACTIONS (6)
  - DYSMENORRHOEA [None]
  - POST PROCEDURAL HAEMORRHAGE [None]
  - PROCEDURAL PAIN [None]
  - DEVICE DISLOCATION [None]
  - DYSPAREUNIA [None]
  - ABDOMINAL PAIN [None]
